FAERS Safety Report 15511194 (Version 1)
Quarter: 2018Q4

REPORT INFORMATION
  Report Type: Spontaneous
  Country: US (occurrence: US)
  Receive Date: 20181017
  Receipt Date: 20181017
  Transmission Date: 20190205
  Serious: Yes (Other)
  Sender: FDA-Public Use
  Company Number: None

PATIENT
  Age: 51 Year
  Sex: Female
  Weight: 57.15 kg

DRUGS (6)
  1. MIGRAINE MEDS [Concomitant]
  2. PROGESTERONE. [Concomitant]
     Active Substance: PROGESTERONE
  3. AIMOVIG [Suspect]
     Active Substance: ERENUMAB-AOOE
     Indication: MIGRAINE
     Dosage: ?          QUANTITY:2 INJECTION(S);OTHER FREQUENCY:MONTHLY;?
     Route: 058
     Dates: start: 20180817, end: 20180817
  4. NATURE-THROID [Concomitant]
     Active Substance: THYROID, PORCINE
  5. TESTOSTERONE. [Concomitant]
     Active Substance: TESTOSTERONE
  6. EST [Concomitant]

REACTIONS (7)
  - Dysphagia [None]
  - Constipation [None]
  - Gastrooesophageal reflux disease [None]
  - Oesophageal spasm [None]
  - Muscle spasms [None]
  - Fatigue [None]
  - Consciousness fluctuating [None]

NARRATIVE: CASE EVENT DATE: 20180822
